FAERS Safety Report 20766731 (Version 8)
Quarter: 2022Q2

REPORT INFORMATION
  Report Type: Report from Study
  Country: JP (occurrence: JP)
  Receive Date: 20220429
  Receipt Date: 20220607
  Transmission Date: 20220721
  Serious: Yes (Hospitalization)
  Sender: FDA-Public Use
  Company Number: JP-NOVARTISPH-NVSC2022JP092832

PATIENT
  Age: 41 Year
  Sex: Male
  Weight: 75 kg

DRUGS (13)
  1. PLACEBO [Suspect]
     Active Substance: UNSPECIFIED INGREDIENT
     Indication: Hidradenitis
     Dosage: UNK
     Route: 058
     Dates: start: 20200709
  2. SECUKINUMAB [Suspect]
     Active Substance: SECUKINUMAB
     Indication: Hidradenitis
     Dosage: 300 MG, Q2W
     Route: 058
     Dates: start: 20210708, end: 20220601
  3. TEPRENONE [Concomitant]
     Active Substance: TEPRENONE
     Indication: General physical condition
     Dosage: 50 MG, TID
     Route: 048
     Dates: start: 20180324
  4. LOXOPROFEN SODIUM DIHYDRATE [Concomitant]
     Active Substance: LOXOPROFEN SODIUM DIHYDRATE
     Indication: Hidradenitis
     Dosage: UNK
     Route: 065
     Dates: start: 20180324
  5. POVIDONE-IODINE [Concomitant]
     Active Substance: POVIDONE-IODINE
     Indication: Hidradenitis
     Dosage: 1 APPLICATION, QD
     Route: 061
     Dates: start: 20190704, end: 20201216
  6. POVIDONE-IODINE [Concomitant]
     Active Substance: POVIDONE-IODINE
     Dosage: 1 APPLICATION, QD
     Route: 061
     Dates: start: 20201217
  7. XYLOCAINE [Concomitant]
     Active Substance: LIDOCAINE HYDROCHLORIDE
     Indication: Local anaesthesia
     Dosage: 2 ML, ONCE/SINGLE
     Route: 058
     Dates: start: 20210415, end: 20210415
  8. XYLOCAINE [Concomitant]
     Active Substance: LIDOCAINE HYDROCHLORIDE
     Dosage: 3 ML, ONCE/SINGLE
     Route: 058
     Dates: start: 20210714, end: 20210714
  9. DOXYCYCLINE HYDROCHLORIDE [Concomitant]
     Active Substance: DOXYCYCLINE HYDROCHLORIDE
     Indication: Hidradenitis
     Dosage: 100 MG, QD
     Route: 065
     Dates: start: 20201029
  10. CLOSTRIDIUM BUTYRICUM SPORES STRAIN M-55 [Concomitant]
     Active Substance: CLOSTRIDIUM BUTYRICUM SPORES STRAIN M-55
     Indication: Product used for unknown indication
     Dosage: 1 TABLET, TID
     Route: 048
     Dates: start: 20210526
  11. HEPARINOID [Concomitant]
     Indication: Product used for unknown indication
     Dosage: 1 APPLICATION, QD
     Route: 061
     Dates: start: 20210714
  12. BUCLADESINE SODIUM [Concomitant]
     Active Substance: BUCLADESINE SODIUM
     Indication: Squamous cell carcinoma
     Dosage: 1 APPLICATION, QD
     Route: 061
     Dates: start: 20210804
  13. AZUNOL [Concomitant]
     Indication: Injury
     Dosage: 1 APPLICATION, BID
     Route: 061
     Dates: start: 20220120

REACTIONS (1)
  - Lymphadenopathy [Not Recovered/Not Resolved]

NARRATIVE: CASE EVENT DATE: 20220421
